FAERS Safety Report 10386098 (Version 1)
Quarter: 2014Q1

REPORT INFORMATION
  Report Type: Spontaneous
  Country: US (occurrence: None)
  Receive Date: 20140306
  Receipt Date: 20140306
  Transmission Date: 20141002
  Serious: Yes (Other)
  Sender: FDA-Public Use
  Company Number: 163-21880-13082658

PATIENT
  Age: 54 Year
  Sex: Female

DRUGS (6)
  1. REVLIMID [Suspect]
     Indication: PLASMA CELL MYELOMA
     Dosage: 21 IN 28 D
     Route: 048
     Dates: start: 20130712, end: 2013
  2. FENTANYL [Concomitant]
  3. ALLOPURINOL [Concomitant]
  4. DOXEPIN HCL (DOXEPIN HYDROCHLORIDE) [Concomitant]
  5. DILAUDID (HYDROMORPHONE HYDROCHLORIDE) [Concomitant]
  6. MAGNESIUM [Concomitant]

REACTIONS (1)
  - Rash pruritic [None]
